FAERS Safety Report 6773996-0 (Version None)
Quarter: 2010Q2

REPORT INFORMATION
  Report Type: 
  Country: None (occurrence: None)
  Receive Date: 20100615
  Receipt Date: 20100615
  Transmission Date: 20101027
  Serious: Yes (Other)
  Sender: FDA-Public Use
  Company Number: None

PATIENT
  Sex: Female
  Weight: 14.5151 kg

DRUGS (1)
  1. SINGULAIR [Suspect]
     Indication: HYPERSENSITIVITY
     Dosage: ONE TABLET EVERY NIGHT PO
     Route: 048
     Dates: start: 20100609, end: 20100612

REACTIONS (4)
  - ABNORMAL DREAMS [None]
  - CRYING [None]
  - MIDDLE INSOMNIA [None]
  - SCREAMING [None]
